FAERS Safety Report 9223071 (Version 1)
Quarter: 2013Q1

REPORT INFORMATION
  Report Type: Spontaneous
  Country: US (occurrence: None)
  Receive Date: 20120914
  Receipt Date: 20120914
  Transmission Date: 20140127
  Serious: Yes (Other)
  Sender: FDA-Public Use
  Company Number: JPI-P-017698

PATIENT
  Age: 49 Year
  Sex: Female

DRUGS (7)
  1. XYREM [Suspect]
     Indication: CATAPLEXY
     Route: 048
     Dates: start: 20111015, end: 20111016
  2. GABAPENTIN [Concomitant]
  3. METHAMPHETAMINE HYDROCHLORIDE [Concomitant]
  4. MULTIPLE UNSPECIFIED MEDICATION [Concomitant]
  5. BLOOD PRESSURE MEDICATION [Concomitant]
  6. METHYLPHENIDATE [Concomitant]
  7. DEXTROAMPHETAMINE [Concomitant]

REACTIONS (9)
  - Blood pressure increased [None]
  - Oedema [None]
  - Swelling [None]
  - Weight increased [None]
  - Fluid retention [None]
  - Mouth injury [None]
  - Laceration [None]
  - Skin fissures [None]
  - Lip injury [None]
